FAERS Safety Report 6979559-6 (Version None)
Quarter: 2010Q3

REPORT INFORMATION
  Report Type: 
  Country: None (occurrence: None)
  Receive Date: 20100910
  Receipt Date: 20100910
  Transmission Date: 20110219
  Serious: Yes (Other)
  Sender: FDA-Public Use
  Company Number: None

PATIENT
  Age: 56 Year
  Sex: Male

DRUGS (1)
  1. GABAPENTIN [Suspect]
     Indication: SCIATICA
     Dosage: 300 MG HS PO
     Route: 048
     Dates: start: 20100623, end: 20100702

REACTIONS (1)
  - HOMICIDAL IDEATION [None]
